FAERS Safety Report 22310856 (Version 1)
Quarter: 2023Q2

REPORT INFORMATION
  Report Type: Report from Study
  Country: CO (occurrence: CO)
  Receive Date: 20230511
  Receipt Date: 20230511
  Transmission Date: 20230722
  Serious: Yes (Other)
  Sender: FDA-Public Use
  Company Number: CO-ALLERGAN-2304589US

PATIENT
  Sex: Male
  Weight: 93 kg

DRUGS (4)
  1. BOTULINUM TOXIN TYPE A [Suspect]
     Active Substance: BOTULINUM TOXIN TYPE A
     Indication: Migraine
     Dosage: 200 UNITS, SINGLE
     Route: 030
     Dates: start: 20210222, end: 20210222
  2. VERUM [SILDENAFIL CITRATE] [Concomitant]
     Indication: Adverse event
     Dosage: UNKNOWN
  3. IBUFLASH MIGRAN [Concomitant]
     Indication: Migraine
     Dosage: UNK
  4. IBUFLASH MIGRAN [Concomitant]
     Indication: Adverse event

REACTIONS (9)
  - Drug-induced liver injury [Not Recovered/Not Resolved]
  - Dizziness [Recovering/Resolving]
  - Thyroiditis [Recovered/Resolved]
  - Helicobacter infection [Recovered/Resolved]
  - Nephritis [Not Recovered/Not Resolved]
  - Blood creatinine increased [Not Recovered/Not Resolved]
  - Hepatitis [Unknown]
  - Headache [Not Recovered/Not Resolved]
  - Drug effect less than expected [Unknown]

NARRATIVE: CASE EVENT DATE: 20220101
